FAERS Safety Report 7754472-5 (Version None)
Quarter: 2011Q3

REPORT INFORMATION
  Report Type: 
  Country: None (occurrence: None)
  Receive Date: 20110915
  Receipt Date: 20110812
  Transmission Date: 20111222
  Serious: Yes (Life-Threatening, Hospitalization)
  Sender: FDA-Public Use
  Company Number: US-ROCHE-790068

PATIENT
  Sex: Female
  Weight: 81.1 kg

DRUGS (5)
  1. PACLITAXEL [Suspect]
     Indication: BREAST CANCER
     Dosage: OVER 1 HR ON DAYS 1, 8 AND 15 CYCLE = 21 DAYS  (CYCLES 5-8) DATE OF LAST DOSE: 27 JUNE 2011
     Route: 042
     Dates: start: 20110304
  2. BEVACIZUMAB [Suspect]
     Indication: BREAST CANCER
     Dosage: IV OVER 30- 90 MIN ON DAY 1 CYCLE = 14 DAYS  (CYCLES 1-4) LAST DOSE: 10 JUNE 2011
     Route: 042
     Dates: start: 20110304
  3. PEGFILGRASTIM [Suspect]
     Indication: BREAST CANCER
     Dosage: PEGFILGRASTIM:  6MG SQ ON DAY 2 DATE OF LAST DOSE PRIOR TO SAE: 30 APRIL 2011
     Route: 058
     Dates: start: 20110304
  4. DOXORUBICIN HCL [Suspect]
     Indication: BREAST CANCER
     Dosage: 60MG/M2 IVP ON DAY 1. CYCLE = 14 DAYS  (CYCLES 1-4)  DATE OF LAST DOSE PRIOR TO SAE: 29 APRIL 2011
     Route: 042
     Dates: start: 20110304
  5. CYCLOPHOSPHAMIDE [Suspect]
     Indication: BREAST CANCER
     Dosage: OVER 20-30 MIN ON DAY 1 CYCLE = 14 DAYS  (CYCLES 1-4) DATE OF LAST DOSE PRIOR TO SAE: 29 APRIL 2011
     Route: 042
     Dates: start: 20110304

REACTIONS (6)
  - LEFT VENTRICULAR DYSFUNCTION [None]
  - VENTRICULAR ARRHYTHMIA [None]
  - SINUS BRADYCARDIA [None]
  - SINUS TACHYCARDIA [None]
  - ARRHYTHMIA SUPRAVENTRICULAR [None]
  - CARDIAC ARREST [None]
